FAERS Safety Report 8333662-7 (Version None)
Quarter: 2012Q2

REPORT INFORMATION
  Report Type: 
  Country: None (occurrence: None)
  Receive Date: 20120503
  Receipt Date: 20120426
  Transmission Date: 20120825
  Serious: Yes (Other)
  Sender: FDA-Public Use
  Company Number: PHHY2012US037245

PATIENT
  Age: 67 Year
  Sex: Female

DRUGS (7)
  1. ATROPINE [Concomitant]
     Dosage: 0.2 MG, UNK
  2. ADVAIR DISKUS 100/50 [Concomitant]
  3. PULMICORT [Concomitant]
  4. ALBUTEROL [Suspect]
  5. DOBUTAMINE HCL [Suspect]
     Dosage: 28 MG, UNK
  6. SPIRIVA [Concomitant]
  7. DUONEB [Concomitant]

REACTIONS (6)
  - PALLOR [None]
  - CHEST PAIN [None]
  - MALAISE [None]
  - ARTERIOSPASM CORONARY [None]
  - ELECTROCARDIOGRAM ST SEGMENT ELEVATION [None]
  - HYPERHIDROSIS [None]
